FAERS Safety Report 25870955 (Version 2)
Quarter: 2025Q4

REPORT INFORMATION
  Report Type: Spontaneous
  Country: JP (occurrence: JP)
  Receive Date: 20251001
  Receipt Date: 20251201
  Transmission Date: 20260118
  Serious: Yes (Hospitalization)
  Sender: ELI LILLY AND COMPANY
  Company Number: JP-NShinyaku-EVA202512922ZZLILLY

PATIENT
  Age: 78 Year
  Sex: Female
  Weight: 49.1 kg

DRUGS (25)
  1. TADALAFIL [Suspect]
     Active Substance: TADALAFIL
     Indication: Pulmonary hypertension
     Dosage: 20 MG, DAILY
     Route: 048
  2. TADALAFIL [Suspect]
     Active Substance: TADALAFIL
     Dosage: 40 MG, DAILY
     Route: 048
  3. TADALAFIL [Suspect]
     Active Substance: TADALAFIL
     Dosage: 20 MG, DAILY
     Route: 048
  4. UPTRAVI [Concomitant]
     Active Substance: SELEXIPAG
     Indication: Pulmonary arterial hypertension
     Dosage: 0.4 MG, DAILY
     Route: 048
  5. UPTRAVI [Concomitant]
     Active Substance: SELEXIPAG
     Dosage: 0.8 MG, DAILY
     Route: 048
  6. UPTRAVI [Concomitant]
     Active Substance: SELEXIPAG
     Dosage: 1.2 MG, DAILY
     Route: 048
  7. UPTRAVI [Concomitant]
     Active Substance: SELEXIPAG
     Dosage: 1.6 MG, DAILY
     Route: 048
  8. UPTRAVI [Concomitant]
     Active Substance: SELEXIPAG
     Dosage: 3.2 MG, DAILY
     Route: 048
  9. UPTRAVI [Concomitant]
     Active Substance: SELEXIPAG
     Dosage: 1.6 MG, DAILY
     Route: 048
  10. AZOSEMIDE [Concomitant]
     Active Substance: AZOSEMIDE
     Dosage: 30 MG, DAILY
     Route: 048
  11. OPSUMIT [Concomitant]
     Active Substance: MACITENTAN
     Indication: Pulmonary arterial hypertension
     Dosage: 10 MG, DAILY
     Route: 048
  12. TOCOPHEROL ACETATE TOWA [Concomitant]
     Dosage: 600 MG, DAILY
     Route: 048
  13. CARBOCYSTEINE [Concomitant]
     Active Substance: CARBOCYSTEINE
     Dosage: 1500 MG, DAILY
     Route: 048
  14. AMBROXOL HYDROCHLORIDE [Concomitant]
     Active Substance: AMBROXOL HYDROCHLORIDE
     Dosage: 45 MG, DAILY
     Route: 048
  15. AMBROXOL HYDROCHLORIDE [Concomitant]
     Active Substance: AMBROXOL HYDROCHLORIDE
     Route: 048
  16. ATORVASTATIN CALCIUM [Concomitant]
     Active Substance: ATORVASTATIN CALCIUM
     Dosage: 10 MG, DAILY
     Route: 048
  17. EDOXABAN TOSYLATE [Concomitant]
     Active Substance: EDOXABAN TOSYLATE
     Indication: Pulmonary artery thrombosis
     Dosage: 30 MG, DAILY
     Route: 048
  18. ELIQUIS [Concomitant]
     Active Substance: APIXABAN
     Dosage: 10 MG, DAILY
     Route: 048
  19. SILDENAFIL CITRATE [Concomitant]
     Active Substance: SILDENAFIL CITRATE
     Indication: Pulmonary arterial hypertension
     Dosage: 40 MG, DAILY
     Route: 048
  20. SPIRONOLACTONE [Concomitant]
     Active Substance: SPIRONOLACTONE
     Dosage: 25 MG, DAILY
     Route: 048
  21. DIPYRIDAMOLE [Concomitant]
     Active Substance: DIPYRIDAMOLE
     Dosage: 75 MG, DAILY
  22. ROSUVASTATIN [Concomitant]
     Active Substance: ROSUVASTATIN
     Dosage: 5 MG, DAILY
     Route: 048
  23. FEBUXOSTAT [Concomitant]
     Active Substance: FEBUXOSTAT
     Dosage: 40 MG, DAILY
     Route: 048
  24. BAZEDOXIFENE ACETATE [Concomitant]
     Active Substance: BAZEDOXIFENE ACETATE
     Dosage: 20 MG, DAILY
     Route: 048
  25. VONOPRAZAN FUMARATE [Concomitant]
     Active Substance: VONOPRAZAN FUMARATE
     Dosage: 10 MG, DAILY
     Route: 048

REACTIONS (8)
  - Anti-neutrophil cytoplasmic antibody positive vasculitis [Unknown]
  - Tubulointerstitial nephritis [Unknown]
  - Cardiac failure acute [Unknown]
  - Dyspnoea [Recovering/Resolving]
  - Pollakiuria [Unknown]
  - Escherichia urinary tract infection [Unknown]
  - Pseudomonas infection [Unknown]
  - Hypoalbuminaemia [Unknown]
